FAERS Safety Report 25814451 (Version 1)
Quarter: 2025Q3

REPORT INFORMATION
  Report Type: Report from Study
  Country: GB (occurrence: GB)
  Receive Date: 20250917
  Receipt Date: 20250917
  Transmission Date: 20251021
  Serious: Yes (Hospitalization)
  Sender: ABBVIE
  Company Number: GB-ABBVIE-6460371

PATIENT
  Age: 33 Year
  Sex: Female

DRUGS (11)
  1. ADALIMUMAB [Suspect]
     Active Substance: ADALIMUMAB
     Indication: Psoriasis
     Dosage: FORM STRENGTH - 80 MG
     Route: 058
     Dates: start: 20210716, end: 20210811
  2. ADALIMUMAB [Suspect]
     Active Substance: ADALIMUMAB
     Dosage: FORM STRENGTH - 40 MG
     Route: 058
     Dates: start: 20210811, end: 20220218
  3. RISANKIZUMAB [Suspect]
     Active Substance: RISANKIZUMAB
     Indication: Psoriasis
     Dosage: FORM STRENGTH - 150MG
     Route: 058
     Dates: start: 20220309, end: 20220413
  4. RISANKIZUMAB [Suspect]
     Active Substance: RISANKIZUMAB
     Dosage: FORM STRENGTH - 150MG
     Route: 058
     Dates: start: 20220413, end: 20221026
  5. IXEKIZUMAB [Suspect]
     Active Substance: IXEKIZUMAB
     Indication: Product used for unknown indication
     Route: 065
     Dates: start: 20230503, end: 20230503
  6. IXEKIZUMAB [Suspect]
     Active Substance: IXEKIZUMAB
     Indication: Product used for unknown indication
     Route: 065
     Dates: start: 20230517, end: 20230930
  7. IXEKIZUMAB [Suspect]
     Active Substance: IXEKIZUMAB
     Indication: Product used for unknown indication
     Route: 065
     Dates: start: 20240124, end: 20240520
  8. IXEKIZUMAB [Suspect]
     Active Substance: IXEKIZUMAB
     Indication: Product used for unknown indication
     Route: 065
     Dates: start: 20240520, end: 20240701
  9. BETAMETHASONE DIPROPIONATE\CALCIPOTRIENE MONOHYDRATE [Concomitant]
     Active Substance: BETAMETHASONE DIPROPIONATE\CALCIPOTRIENE MONOHYDRATE
     Indication: Psoriasis
     Dosage: ROUTE - TOPIC / SKIN / DERMAL SPRAY. DOSE - 1.
     Dates: start: 20210707
  10. LEVOTHYROXINE [Concomitant]
     Active Substance: LEVOTHYROXINE
     Indication: Hypothyroidism
     Dosage: FORM STRENGTH- 50MCG
     Route: 048
     Dates: start: 20140312
  11. FLUOXETINE [Concomitant]
     Active Substance: FLUOXETINE HYDROCHLORIDE
     Indication: Depression
     Route: 048
     Dates: start: 20200601

REACTIONS (3)
  - Staphylococcal bacteraemia [Recovered/Resolved]
  - Psoriasis [Recovered/Resolved]
  - Cellulitis [Recovered/Resolved]

NARRATIVE: CASE EVENT DATE: 20210829
